FAERS Safety Report 9504472 (Version 2)
Quarter: 2013Q3

REPORT INFORMATION
  Report Type: Report from Study
  Country: NL (occurrence: NL)
  Receive Date: 20130906
  Receipt Date: 20130926
  Transmission Date: 20140515
  Serious: Yes (Hospitalization)
  Sender: FDA-Public Use
  Company Number: NL-ROCHE-1268101

PATIENT
  Age: 59 Year
  Sex: Female

DRUGS (8)
  1. PERTUZUMAB [Suspect]
     Indication: HER-2 POSITIVE BREAST CANCER
     Dosage: LOADING DOSE
     Route: 042
     Dates: start: 20130709, end: 20130709
  2. PERTUZUMAB [Suspect]
     Dosage: MAINTENANCE DOSE?LAST DOSE PRIOR TO SAE 21/AUG/2013
     Route: 042
     Dates: start: 20130730
  3. TRASTUZUMAB [Suspect]
     Indication: HER-2 POSITIVE BREAST CANCER
     Dosage: LOADING DOSE 8MG/KG
     Route: 042
     Dates: start: 20130710, end: 20130710
  4. TRASTUZUMAB [Suspect]
     Dosage: MAINTENANCE DOSE 6MG/KG?LAST DOSE PRIOR TO SAE 21/AUG/2013
     Route: 042
     Dates: start: 20130801
  5. PACLITAXEL [Suspect]
     Indication: HER-2 POSITIVE BREAST CANCER
     Dosage: LAST DOSE PRIOR TO SAE 21/AUG/2013
     Route: 042
     Dates: start: 20130710
  6. AMOXICILLIN [Concomitant]
     Route: 065
     Dates: start: 201306, end: 20130709
  7. CALCIUM CARBONATE/CHOLECALCIFEROL [Concomitant]
     Dosage: 500/400MG
     Route: 065
     Dates: start: 2013
  8. CIPROXIN (NETHERLANDS) [Concomitant]
     Route: 065
     Dates: start: 20130717, end: 20130724

REACTIONS (2)
  - Escherichia urinary tract infection [Recovered/Resolved]
  - Diarrhoea [Not Recovered/Not Resolved]
